FAERS Safety Report 4380722-1 (Version None)
Quarter: 2004Q2

REPORT INFORMATION
  Report Type: 
  Country: None (occurrence: None)
  Receive Date: 20040618
  Receipt Date: 20040607
  Transmission Date: 20050107
  Serious: Yes (Other)
  Sender: FDA-Public Use
  Company Number: PHFR2004GB02454

PATIENT
  Age: 31 Year
  Sex: Male

DRUGS (2)
  1. TEGRETOL [Suspect]
     Indication: EPILEPSY
     Dosage: 200 MG, QID
     Route: 048
     Dates: start: 19960101
  2. EPILIM CHRONO [Suspect]
     Indication: EPILEPSY
     Dosage: 500 MG, QID
     Route: 048
     Dates: start: 19960101

REACTIONS (1)
  - AMNESIA [None]
